FAERS Safety Report 7125945-3 (Version None)
Quarter: 2010Q4

REPORT INFORMATION
  Report Type: 
  Country: None (occurrence: None)
  Receive Date: 20101129
  Receipt Date: 20101118
  Transmission Date: 20110411
  Serious: Yes (Death)
  Sender: FDA-Public Use
  Company Number: US-JNJFOC-20091102493

PATIENT
  Sex: Female

DRUGS (3)
  1. FENTANYL-100 [Suspect]
     Indication: ILL-DEFINED DISORDER
     Route: 062
  2. BUTALBITAL [Concomitant]
     Indication: ILL-DEFINED DISORDER
     Route: 065
  3. ETHANOL [Concomitant]
     Indication: ILL-DEFINED DISORDER
     Route: 065

REACTIONS (5)
  - DRUG INEFFECTIVE [None]
  - INAPPROPRIATE SCHEDULE OF DRUG ADMINISTRATION [None]
  - INTENTIONAL DRUG MISUSE [None]
  - NARCOTIC INTOXICATION [None]
  - TREATMENT NONCOMPLIANCE [None]
